FAERS Safety Report 7113858-2 (Version None)
Quarter: 2010Q4

REPORT INFORMATION
  Report Type: 
  Country: None (occurrence: None)
  Receive Date: 20101119
  Receipt Date: 20101111
  Transmission Date: 20110411
  Serious: Yes (Other)
  Sender: FDA-Public Use
  Company Number: NO-PFIZER INC-2010145654

PATIENT
  Sex: Female

DRUGS (2)
  1. DEPO-MEDROL [Suspect]
     Indication: ARTHRITIS
  2. ARAVA [Suspect]
     Indication: ARTHRITIS
     Route: 048

REACTIONS (7)
  - DIZZINESS [None]
  - EAR DISCOMFORT [None]
  - FEELING HOT [None]
  - HEADACHE [None]
  - HYPOACUSIS [None]
  - MEMORY IMPAIRMENT [None]
  - URINARY INCONTINENCE [None]
